FAERS Safety Report 10081547 (Version 1)
Quarter: 2014Q2

REPORT INFORMATION
  Report Type: Spontaneous
  Country: US (occurrence: None)
  Receive Date: 20140415
  Receipt Date: 20140415
  Transmission Date: 20141212
  Serious: Yes (Hospitalization, Other)
  Sender: FDA-Public Use
  Company Number: None

PATIENT
  Age: 68 Year
  Sex: Female
  Weight: 80.5 kg

DRUGS (8)
  1. CIPROFLOXACIN 250 MG [Suspect]
     Indication: URINARY TRACT INFECTION
     Route: 048
     Dates: start: 20140227, end: 20140303
  2. TOPROL [Concomitant]
  3. SYNTHROID [Concomitant]
  4. PRILOSEC [Concomitant]
  5. UTIRA-C [Concomitant]
  6. BABY ASPIRIN [Concomitant]
  7. FML FORTE EYE DROPS [Concomitant]
  8. TRIMETHOPRIM [Concomitant]

REACTIONS (7)
  - Rash [None]
  - Pruritus [None]
  - Gastrointestinal haemorrhage [None]
  - Pain in extremity [None]
  - Tendonitis [None]
  - Back pain [None]
  - Pain in extremity [None]
